FAERS Safety Report 17665071 (Version 1)
Quarter: 2020Q2

REPORT INFORMATION
  Report Type: Spontaneous
  Country: US (occurrence: US)
  Receive Date: 20200414
  Receipt Date: 20200414
  Transmission Date: 20200713
  Serious: Yes (Hospitalization, Other)
  Sender: FDA-Public Use
  Company Number: US-ELI_LILLY_AND_COMPANY-US202004002159

PATIENT
  Age: 52 Year
  Sex: Female
  Weight: 58 kg

DRUGS (3)
  1. DILATINE [Interacting]
     Active Substance: CHLOROBUTANOL\TROPICAMIDE
     Dosage: 160 MG, DAILY
     Route: 065
     Dates: start: 2019
  2. PROZAC [Suspect]
     Active Substance: FLUOXETINE HYDROCHLORIDE
     Indication: PRODUCT USED FOR UNKNOWN INDICATION
     Dosage: UNK, UNKNOWN
     Route: 065
     Dates: start: 1990
  3. DILATINE [Interacting]
     Active Substance: CHLOROBUTANOL\TROPICAMIDE
     Indication: EPILEPSY
     Dosage: 150 MG, DAILY
     Dates: start: 1990

REACTIONS (4)
  - Blood calcium decreased [Not Recovered/Not Resolved]
  - Wrist fracture [Unknown]
  - Osteoporosis [Not Recovered/Not Resolved]
  - Drug interaction [Unknown]

NARRATIVE: CASE EVENT DATE: 201706
